FAERS Safety Report 9441584 (Version 1)
Quarter: 2013Q3

REPORT INFORMATION
  Report Type: Spontaneous
  Country: US (occurrence: US)
  Receive Date: 20130806
  Receipt Date: 20130806
  Transmission Date: 20140515
  Serious: Yes (Other)
  Sender: FDA-Public Use
  Company Number: US-JNJFOC-20130715591

PATIENT
  Age: 93 Year
  Sex: Female
  Weight: 65.77 kg

DRUGS (2)
  1. TYLENOL PM EXTRA STRENGTH [Suspect]
     Indication: ARTHRALGIA
     Dosage: 2 TABLETS NIGHTLY FOR 10 TO 12 YEARS
     Route: 048
  2. EXTRA STRENGTH TYLENOL PM [Suspect]
     Indication: SLEEP DISORDER THERAPY
     Dosage: 2 TABLETS NIGHTLY FOR 10 TO 12 YEARS
     Route: 048

REACTIONS (3)
  - Dependence [Recovered/Resolved]
  - Off label use [Unknown]
  - Insomnia [Recovered/Resolved]
